FAERS Safety Report 4605192-7 (Version None)
Quarter: 2005Q2

REPORT INFORMATION
  Report Type: 
  Country: None (occurrence: None)
  Receive Date: 20050223
  Receipt Date: 20041117
  Transmission Date: 20051028
  Serious: Yes (Hospitalization)
  Sender: FDA-Public Use
  Company Number: APP200400852

PATIENT
  Age: 69 Year
  Sex: Male
  Weight: 67.4499 kg

DRUGS (4)
  1. CARBOPLATIN [Suspect]
     Indication: LUNG NEOPLASM MALIGNANT
     Dosage: (250 MG,1 IN 3 WK), INTRAVENOUS
     Route: 042
     Dates: start: 20041012
  2. GEMZAR [Concomitant]
  3. DECADRON [Concomitant]
  4. ZOFRAN [Concomitant]

REACTIONS (1)
  - HYPOTENSION [None]
